FAERS Safety Report 5052426-3 (Version None)
Quarter: 2006Q3

REPORT INFORMATION
  Report Type: 
  Country: None (occurrence: None)
  Receive Date: 20060714
  Receipt Date: 20060714
  Transmission Date: 20061208
  Serious: Yes (Hospitalization)
  Sender: FDA-Public Use
  Company Number: None

PATIENT
  Sex: Male
  Weight: 49.5 kg

DRUGS (5)
  1. METHOTREXATE [Suspect]
     Dosage: 45 MG
  2. PEG-L-ASPARGINASE (K-H) [Suspect]
     Dosage: 3750 IU
  3. VINCRISTINE SULFATE [Suspect]
     Dosage: 6 MG
  4. CYTARABINE [Suspect]
     Dosage: 880 MG
  5. DOXORUBICIN HYDROCHLORIDE [Suspect]
     Dosage: 112.5 MG

REACTIONS (5)
  - ASTHENIA [None]
  - CEREBRAL INFARCTION [None]
  - CEREBRAL ISCHAEMIA [None]
  - CEREBROVASCULAR ACCIDENT [None]
  - MUSCULAR WEAKNESS [None]
